FAERS Safety Report 4525611-4 (Version None)
Quarter: 2004Q4

REPORT INFORMATION
  Report Type: 
  Country: None (occurrence: None)
  Receive Date: 20041116
  Receipt Date: 20040914
  Transmission Date: 20050328
  Serious: No
  Sender: FDA-Public Use
  Company Number: S04-USA-06195-01

PATIENT
  Age: 85 Year
  Sex: Male

DRUGS (5)
  1. NAMENDA [Suspect]
     Indication: VASCULAR DEMENTIA
     Dosage: 5 MG QD PO
     Route: 048
     Dates: start: 20040802, end: 20040808
  2. NAMENDA [Suspect]
     Indication: VASCULAR DEMENTIA
     Dosage: 5 MG BID PO
     Route: 048
     Dates: start: 20040809, end: 20040815
  3. NAMENDA [Suspect]
     Indication: VASCULAR DEMENTIA
     Dosage: 10 MG QAM PO
     Route: 048
     Dates: start: 20040816, end: 20040822
  4. NAMENDA [Suspect]
     Indication: VASCULAR DEMENTIA
     Dosage: 5 MG QHS PO
     Route: 048
     Dates: start: 20040816, end: 20040822
  5. NAMENDA [Suspect]
     Indication: VASCULAR DEMENTIA
     Dosage: 10 MG BID PO
     Route: 048
     Dates: start: 20040823

REACTIONS (2)
  - DIZZINESS [None]
  - HEADACHE [None]
